FAERS Safety Report 6737576-5 (Version None)
Quarter: 2010Q2

REPORT INFORMATION
  Report Type: 
  Country: None (occurrence: None)
  Receive Date: 20100519
  Receipt Date: 20100503
  Transmission Date: 20101027
  Serious: Yes (Hospitalization)
  Sender: FDA-Public Use
  Company Number: DSA_43096_2010

PATIENT
  Sex: Female
  Weight: 54 kg

DRUGS (19)
  1. LORAZEPAM [Suspect]
     Dosage: (DF)
     Dates: start: 20080101
  2. IMC-3Q3 (RH ANTI-PDGFRA MAB) [Suspect]
     Indication: OVARIAN CANCER
     Dosage: (1080 MG, FREQUENCY: 1 IN 2 WK INTRAVENOUS ( NOT OTHERWISE SPECIFIED))
     Route: 042
     Dates: start: 20100409, end: 20100409
  3. DOXORUBICIN HCL [Suspect]
     Indication: NEOPLASM MALIGNANT
     Dosage: (61.76 MG, FREQUENCY: 1 IN 4 WEEK INTRAVENOUS (NOT OTHERWISE SPCIFIED)
     Route: 042
     Dates: start: 20100313, end: 20100409
  4. PHENTANYL (PHENTANYL) (NOT SPECIFIED) [Suspect]
     Indication: PAIN
     Dosage: (DF)
     Dates: start: 20100313
  5. FLUOXETINE [Suspect]
     Indication: DEPRESSION
     Dosage: (DF)
     Dates: start: 20080101
  6. MORPHINE [Suspect]
     Indication: PAIN
     Dosage: (DF)
     Dates: start: 20100404, end: 20100416
  7. TRAZODONE HCL [Suspect]
     Indication: DEPRESSION
     Dosage: (DF)
     Dates: start: 20100315
  8. ONDANSETRON [Suspect]
     Indication: VOMITING
     Dosage: (DF)
     Dates: start: 20100325
  9. HALOPERIDOL [Suspect]
     Indication: DEPRESSION
     Dosage: (DF)
     Dates: start: 20100401, end: 20100422
  10. MACROGOL [Concomitant]
  11. ENOXAPARIN SODIUM [Concomitant]
  12. CONTRIMOXAZOLE [Concomitant]
  13. HYDROCORTISONE [Concomitant]
  14. DEXAMETHASONE [Concomitant]
  15. OMEPRAZOLE [Concomitant]
  16. PARACETAMOL [Concomitant]
  17. AUGMENTINE /00756801/ [Concomitant]
  18. UROKINASE [Concomitant]
  19. BLOOD, WHOLE [Concomitant]

REACTIONS (5)
  - BRADYPHRENIA [None]
  - DEPRESSION [None]
  - OVERDOSE [None]
  - PYREXIA [None]
  - SOMNOLENCE [None]
